FAERS Safety Report 8854361 (Version 4)
Quarter: 2014Q1

REPORT INFORMATION
  Report Type: Spontaneous
  Country: US (occurrence: US)
  Receive Date: 20121023
  Receipt Date: 20140325
  Transmission Date: 20141002
  Serious: Yes (Other)
  Sender: FDA-Public Use
  Company Number: US-ROCHE-1146681

PATIENT
  Age: 76 Year
  Sex: Male

DRUGS (10)
  1. ZELBORAF [Suspect]
     Indication: METASTATIC MALIGNANT MELANOMA
     Dosage: 4 TAB, Q12 HOURS; LAST DOSE PRIOR TO SAE- 05/MAR/2012
     Route: 048
     Dates: start: 20120221
  2. ZELBORAF [Suspect]
     Route: 048
  3. ZELBORAF [Suspect]
     Route: 048
  4. ZELBORAF [Suspect]
     Route: 048
  5. ZELBORAF [Suspect]
     Route: 048
  6. COBIMETINIB [Suspect]
     Indication: METASTATIC MALIGNANT MELANOMA
     Dosage: 3 WEEKS FOLLOWED BY 1 WEEK OFF DRUG
     Route: 048
  7. COBIMETINIB [Suspect]
     Route: 048
  8. PRADAXA [Concomitant]
     Route: 048
  9. DIGOXIN [Concomitant]
     Route: 048
  10. DILTIAZEM CD [Concomitant]
     Route: 048

REACTIONS (10)
  - Chronic myelomonocytic leukaemia [Recovered/Resolved]
  - Dyspnoea [Recovering/Resolving]
  - Pneumonia [Recovered/Resolved]
  - Disease progression [Unknown]
  - Chronic myelomonocytic leukaemia [Unknown]
  - White blood cell count increased [Recovered/Resolved]
  - N-ras gene mutation [Unknown]
  - Anaemia [Unknown]
  - Fatigue [Unknown]
  - Fatigue [Unknown]
